FAERS Safety Report 5933366-1 (Version None)
Quarter: 2008Q4

REPORT INFORMATION
  Report Type: 
  Country: None (occurrence: None)
  Receive Date: 20081023
  Receipt Date: 20081008
  Transmission Date: 20090506
  Serious: Yes (Disabling)
  Sender: FDA-Public Use
  Company Number: 8037781

PATIENT
  Sex: Male

DRUGS (1)
  1. KEPPRA [Suspect]
     Indication: EPILEPSY

REACTIONS (4)
  - CERVICAL VERTEBRAL FRACTURE [None]
  - CONVULSION [None]
  - DRUG INEFFECTIVE [None]
  - FALL [None]
